FAERS Safety Report 21653682 (Version 1)
Quarter: 2022Q4

REPORT INFORMATION
  Report Type: Report from Study
  Country: US (occurrence: None)
  Receive Date: 20221129
  Receipt Date: 20221129
  Transmission Date: 20230113
  Serious: Yes (Hospitalization)
  Sender: FDA-Public Use
  Company Number: US-ROCHE-3223657

PATIENT
  Age: 77 Year
  Sex: Male
  Weight: 104.9 kg

DRUGS (2)
  1. ATEZOLIZUMAB [Suspect]
     Active Substance: ATEZOLIZUMAB
     Indication: Bladder cancer
     Dosage: ON 02/MAY/2022, LAST DOSE ADMINISTERED.
     Route: 041
     Dates: start: 20220411, end: 20220502
  2. GEMCITABINE HYDROCHLORIDE [Suspect]
     Active Substance: GEMCITABINE HYDROCHLORIDE
     Indication: Bladder cancer
     Dosage: ON 18/MAY/2022, LAST DOSE OF GEMCITABINE HYDROCHLORIDE 60 MG WAS ADMINISTERED.
     Route: 042
     Dates: start: 20220411

REACTIONS (4)
  - Dyspnoea [Recovered/Resolved]
  - Hyperthyroidism [Unknown]
  - Hypoxia [Recovered/Resolved]
  - Pulmonary oedema [Recovered/Resolved]

NARRATIVE: CASE EVENT DATE: 20220518
